FAERS Safety Report 8004033-8 (Version None)
Quarter: 2011Q4

REPORT INFORMATION
  Report Type: 
  Country: None (occurrence: None)
  Receive Date: 20111222
  Receipt Date: 20111214
  Transmission Date: 20120403
  Serious: Yes (Hospitalization)
  Sender: FDA-Public Use
  Company Number: JP-MERCK-1112USA02353

PATIENT
  Age: 76 Year
  Sex: Male
  Weight: 58 kg

DRUGS (13)
  1. STANZOME [Concomitant]
     Route: 048
  2. PLETAL [Concomitant]
     Dosage: DIVIDED DOSE FREQUENCY UNKNOWN
     Route: 048
  3. ENALAPRIL MALEATE [Suspect]
     Route: 048
  4. ZOLPIDEM [Concomitant]
     Route: 048
  5. SPIRONOLACTONE [Suspect]
     Route: 048
  6. CLONAZEPAM [Concomitant]
     Dosage: DIVIDED DOSE FREQUENCY UNKNOWN
     Route: 048
  7. HYZAAR [Suspect]
     Route: 048
  8. NIFEDIPINE [Suspect]
     Route: 048
  9. LYRICA [Concomitant]
     Dosage: DIVIDED DOSE FREQUENCY UNKNOWN
     Route: 048
  10. LASIX [Suspect]
     Route: 048
  11. DEPAKENE [Concomitant]
     Dosage: DIVIDED DOSE FREQUENCY UNKNOWN
     Route: 048
  12. CARVEDILOL [Suspect]
     Dosage: DIVIDED DOSE FREQUENCY UNKNOWN
     Route: 048
  13. ASPIRIN [Concomitant]
     Route: 048

REACTIONS (1)
  - RENAL DISORDER [None]
